FAERS Safety Report 8556328-7 (Version None)
Quarter: 2012Q3

REPORT INFORMATION
  Report Type: 
  Country: None (occurrence: None)
  Receive Date: 20120801
  Receipt Date: 20120717
  Transmission Date: 20120928
  Serious: No
  Sender: FDA-Public Use
  Company Number: US-009507513-2012SP026607

PATIENT

DRUGS (1)
  1. NEXPLANON [Suspect]
     Indication: CONTRACEPTION
     Dosage: 68 MG, 3YEARS
     Route: 059
     Dates: start: 20120516

REACTIONS (6)
  - PAIN IN EXTREMITY [None]
  - IMPLANT SITE SWELLING [None]
  - APPLICATION SITE DISCHARGE [None]
  - GRIP STRENGTH DECREASED [None]
  - HYPOAESTHESIA [None]
  - IMPLANT SITE HAEMATOMA [None]
